FAERS Safety Report 9909754 (Version 4)
Quarter: 2014Q3

REPORT INFORMATION
  Report Type: Spontaneous
  Country: US (occurrence: US)
  Receive Date: 20140219
  Receipt Date: 20140702
  Transmission Date: 20150326
  Serious: Yes (Other)
  Sender: FDA-Public Use
  Company Number: US-PFIZER INC-2014044494

PATIENT
  Age: 77 Year
  Sex: Female
  Weight: 68 kg

DRUGS (5)
  1. PREMARIN [Suspect]
     Active Substance: ESTROGENS, CONJUGATED
     Dosage: UNK
  2. AMLODIPINE [Concomitant]
     Active Substance: AMLODIPINE BESYLATE
     Indication: HYPERTENSION
     Dosage: 10 MG, UNK
  3. KLOR-CON [Concomitant]
     Active Substance: POTASSIUM CHLORIDE
     Dosage: UNK
  4. LOSARTAN [Concomitant]
     Active Substance: LOSARTAN
     Indication: HYPERTENSION
     Dosage: 50 MG, UNK
  5. PREMARIN [Suspect]
     Active Substance: ESTROGENS, CONJUGATED
     Indication: VAGINAL LACERATION
     Dosage: 0.625 MG, EVERY OTHER DAY
     Dates: start: 201301, end: 201404

REACTIONS (8)
  - Breast cancer [Unknown]
  - Joint injury [Unknown]
  - Eye disorder [Unknown]
  - Drug prescribing error [None]
  - Arthropathy [Unknown]
  - Alopecia [Unknown]
  - Drug dispensing error [Unknown]
  - Road traffic accident [Unknown]

NARRATIVE: CASE EVENT DATE: 201404
